FAERS Safety Report 16895882 (Version 1)
Quarter: 2019Q4

REPORT INFORMATION
  Report Type: Spontaneous
  Country: US (occurrence: US)
  Receive Date: 20190814
  Receipt Date: 20190814
  Transmission Date: 20200122
  Serious: No
  Sender: FDA-Public Use
  Company Number: None

PATIENT
  Age: 51 Year
  Sex: Male

DRUGS (2)
  1. GLATOPA [Concomitant]
     Active Substance: GLATIRAMER ACETATE
  2. DALFAMPRIDINE 10MG ER TAB [Suspect]
     Active Substance: DALFAMPRIDINE
     Indication: MULTIPLE SCLEROSIS
     Route: 048
     Dates: start: 20190410

REACTIONS (3)
  - Withdrawal syndrome [None]
  - Headache [None]
  - Drug intolerance [None]

NARRATIVE: CASE EVENT DATE: 20190814
